FAERS Safety Report 8975812 (Version 1)
Quarter: 2012Q4

REPORT INFORMATION
  Report Type: 
  Country: US (occurrence: US)
  Receive Date: 20121219
  Receipt Date: 20121219
  Transmission Date: 20130627
  Serious: No
  Sender: FDA-Public Use
  Company Number: US-009507513-1212USA006743

PATIENT
  Age: 33 Year
  Sex: Female

DRUGS (2)
  1. SAPHRIS [Suspect]
     Indication: ANTIPSYCHOTIC DRUG LEVEL
     Dosage: 5 mg, hs
     Route: 060
  2. LITHIUM CARBONATE [Concomitant]

REACTIONS (2)
  - Hypomania [Recovering/Resolving]
  - Inappropriate schedule of drug administration [Unknown]
